FAERS Safety Report 26168244 (Version 1)
Quarter: 2025Q4

REPORT INFORMATION
  Report Type: Spontaneous
  Country: US (occurrence: US)
  Receive Date: 20251217
  Receipt Date: 20251217
  Transmission Date: 20260118
  Serious: Yes (Hospitalization, Other)
  Sender: TAKEDA
  Company Number: US-TAKEDA-2025TUS111622

PATIENT
  Age: 75 Year
  Sex: Female

DRUGS (3)
  1. FIRAZYR [Suspect]
     Active Substance: ICATIBANT ACETATE
     Indication: Immune system disorder
     Dosage: 3 MILLILITER
  2. FIRAZYR [Suspect]
     Active Substance: ICATIBANT ACETATE
  3. HAEGARDA [Suspect]
     Active Substance: HUMAN C1-ESTERASE INHIBITOR
     Indication: Product used for unknown indication
     Dosage: 2000 INTERNATIONAL UNIT, Q2WEEKS

REACTIONS (2)
  - Cerebral haemorrhage [Recovered/Resolved]
  - Injection site reaction [Unknown]
